FAERS Safety Report 8316971-7 (Version None)
Quarter: 2012Q2

REPORT INFORMATION
  Report Type: 
  Country: None (occurrence: None)
  Receive Date: 20120427
  Receipt Date: 20120419
  Transmission Date: 20120825
  Serious: Yes (Hospitalization)
  Sender: FDA-Public Use
  Company Number: US-BAYER-2011-123162

PATIENT
  Age: 37 Year
  Sex: Female
  Weight: 102.4 kg

DRUGS (5)
  1. LIDOCAINE [Concomitant]
     Indication: PAIN
  2. LIDOCAINE [Concomitant]
     Indication: PLEURITIC PAIN
  3. HYDROCODONE [Concomitant]
     Indication: PAIN
  4. HYDROCHLOROTHIAZIDE [Concomitant]
  5. YAZ [Suspect]
     Indication: CONTRACEPTION
     Dosage: UNK
     Dates: start: 20080101, end: 20091201

REACTIONS (8)
  - INJURY [None]
  - DEPRESSION [None]
  - PAIN [None]
  - HYPOTENSION [None]
  - PLEURITIC PAIN [None]
  - DYSPNOEA [None]
  - PULMONARY EMBOLISM [None]
  - PLEURAL EFFUSION [None]
